FAERS Safety Report 14363576 (Version 2)
Quarter: 2018Q1

REPORT INFORMATION
  Report Type: Spontaneous
  Country: JP (occurrence: JP)
  Receive Date: 20180108
  Receipt Date: 20180205
  Transmission Date: 20180509
  Serious: Yes (Other)
  Sender: FDA-Public Use
  Company Number: JP-PFIZER INC-2017299242

PATIENT
  Age: 14 Year
  Sex: Male
  Weight: 35.2 kg

DRUGS (19)
  1. E KEPPRA [Concomitant]
     Active Substance: LEVETIRACETAM
     Dosage: 500 MG, UNK  (500 MG, 2)
     Route: 041
     Dates: start: 20170104, end: 20170112
  2. HEPARIN [Concomitant]
     Active Substance: HEPARIN SODIUM
     Dosage: 4 ML, UNK
     Route: 042
     Dates: start: 20170108, end: 20170110
  3. PHYSIO 140 [Concomitant]
     Active Substance: CALCIUM GLUCONATE\DEXTROSE\MAGNESIUM CHLORIDE\POTASSIUM CHLORIDE\SODIUM ACETATE\SODIUM CHLORIDE\TRISODIUM CITRATE DIHYDRATE
     Dosage: UNK (1)
     Route: 041
     Dates: start: 20161230
  4. ACELIO [Concomitant]
     Active Substance: ACETAMINOPHEN
     Dosage: 500 MG, UNK (500 MG, 4)
     Route: 041
     Dates: start: 20170103
  5. FOSPHENYTOIN SODIUM. [Suspect]
     Active Substance: FOSPHENYTOIN SODIUM
     Indication: SEIZURE
     Dosage: 750 MG, 1X/DAY
     Route: 041
     Dates: start: 20161231, end: 20161231
  6. MAGNESIUM OXIDE. [Concomitant]
     Active Substance: MAGNESIUM OXIDE
     Indication: CONSTIPATION PROPHYLAXIS
     Dosage: 1.5 G, UNK (0.5 GM, 3 IN 1 D)
     Route: 048
  7. MIDAZOLAM [Concomitant]
     Active Substance: MIDAZOLAM HYDROCHLORIDE
     Indication: SEDATION
     Dosage: 2 MG, UNK
     Route: 042
     Dates: start: 20161230, end: 20161231
  8. MIDAZOLAM [Concomitant]
     Active Substance: MIDAZOLAM HYDROCHLORIDE
     Dosage: 3 ML, UNK
     Route: 042
     Dates: start: 20170101, end: 20170107
  9. E KEPPRA [Concomitant]
     Active Substance: LEVETIRACETAM
     Indication: SEIZURE
     Dosage: 700 MG, UNK (350 MG, 2 IN 1 D)
     Route: 041
     Dates: start: 20170103, end: 20170104
  10. HEPARIN [Concomitant]
     Active Substance: HEPARIN SODIUM
     Indication: THROMBOSIS PROPHYLAXIS
     Dosage: UNK (2)
     Route: 042
     Dates: start: 20161231, end: 20170108
  11. MIDAZOLAM [Concomitant]
     Active Substance: MIDAZOLAM HYDROCHLORIDE
     Dosage: 2 ML, UNK
     Route: 042
     Dates: start: 20170107, end: 20170108
  12. MIDAZOLAM [Concomitant]
     Active Substance: MIDAZOLAM HYDROCHLORIDE
     Dosage: 1 ML, UNK
     Route: 042
     Dates: start: 20170108, end: 20170109
  13. PICOSULFATE NA [Concomitant]
     Active Substance: SODIUM PICOSULFATE
     Dosage: UNK
     Route: 048
     Dates: start: 20170105
  14. ESLAX [Concomitant]
     Active Substance: ROCURONIUM BROMIDE
     Indication: TREMOR
     Dosage: 1 MG, UNK
     Route: 042
     Dates: start: 20161230, end: 20170101
  15. LASIX [Concomitant]
     Active Substance: FUROSEMIDE
     Dosage: 5 MG, 1X/DAY (5 MG, 1 IN 1 D)
     Route: 042
     Dates: start: 20170101
  16. FOSPHENYTOIN SODIUM. [Suspect]
     Active Substance: FOSPHENYTOIN SODIUM
     Dosage: 300 MG, 1X/DAY
     Route: 041
     Dates: start: 20170101, end: 20170110
  17. MIDAZOLAM [Concomitant]
     Active Substance: MIDAZOLAM HYDROCHLORIDE
     Indication: SEIZURE
     Dosage: 2.5 ML, UNK
     Route: 042
     Dates: start: 20161231, end: 20170101
  18. MAGNESIUM SULFATE. [Concomitant]
     Active Substance: MAGNESIUM SULFATE
     Indication: ELECTROLYTE SUBSTITUTION THERAPY
     Dosage: 20 IU, UNK
     Route: 042
     Dates: start: 20161230, end: 20170103
  19. SODIUM CHLORIDE. [Concomitant]
     Active Substance: SODIUM CHLORIDE
     Indication: ELECTROLYTE SUBSTITUTION THERAPY
     Dosage: 3 MG, UNK (1 GM, 3 IN 1 D )
     Route: 048
     Dates: start: 20170103

REACTIONS (6)
  - Necrosis [Unknown]
  - Seizure [Unknown]
  - Tremor [Unknown]
  - Pyrexia [Unknown]
  - Drug level decreased [Unknown]
  - Brain oedema [Unknown]
